FAERS Safety Report 7506120-7 (Version None)
Quarter: 2011Q2

REPORT INFORMATION
  Report Type: 
  Country: None (occurrence: None)
  Receive Date: 20110520
  Receipt Date: 20110510
  Transmission Date: 20111010
  Serious: Yes (Other)
  Sender: FDA-Public Use
  Company Number: B0719534A

PATIENT
  Age: 27 Year
  Sex: Female

DRUGS (3)
  1. SALBUTAMOL SULPHATE (FORMULATION UNKNOWN)(GENERIC) (ALBUTEROL SULFATE) [Suspect]
     Indication: ASTHMA
     Dosage: AS REQUIRED
  2. EPINEPHRINE [Suspect]
     Dosage: SUBCUTANEOUS
     Route: 058
  3. FLUTICASONE PROPIONATE+SALMETEROL XINAFOATE (FORMULATION (FLUTICASONE+ [Suspect]
     Indication: ASTHMA
     Dosage: AS REQUIRED

REACTIONS (4)
  - LACTIC ACIDOSIS [None]
  - NASOPHARYNGITIS [None]
  - CONDITION AGGRAVATED [None]
  - ASTHMA [None]
